FAERS Safety Report 7090780-1 (Version None)
Quarter: 2010Q4

REPORT INFORMATION
  Report Type: 
  Country: None (occurrence: None)
  Receive Date: 20101109
  Receipt Date: 20101102
  Transmission Date: 20110411
  Serious: No
  Sender: FDA-Public Use
  Company Number: US-ROXANE LABORATORIES, INC.-2010-RO-00955RO

PATIENT
  Sex: Female
  Weight: 83 kg

DRUGS (4)
  1. MORPHINE [Suspect]
     Indication: NERVE INJURY
     Dosage: 15 MG
     Dates: start: 20091109
  2. MORPHINE [Suspect]
     Indication: PAIN
  3. WHITE WILLOW [Concomitant]
     Indication: THERAPEUTIC PROCEDURE
  4. ASPIRIN [Concomitant]

REACTIONS (3)
  - DRUG INEFFECTIVE [None]
  - FEELING ABNORMAL [None]
  - PAIN [None]
